FAERS Safety Report 15857266 (Version 1)
Quarter: 2019Q1

REPORT INFORMATION
  Report Type: Report from Study
  Country: IN (occurrence: IN)
  Receive Date: 20190123
  Receipt Date: 20190123
  Transmission Date: 20190417
  Serious: Yes (Other)
  Sender: FDA-Public Use
  Company Number: IN-UCBSA-2019002051

PATIENT
  Age: 20 Year
  Sex: Male

DRUGS (1)
  1. BRIVARACETAM [Suspect]
     Active Substance: BRIVARACETAM
     Indication: EPILEPSY
     Dosage: 100 MG, 2X/DAY (BID)
     Route: 048

REACTIONS (5)
  - Seizure [Unknown]
  - Abnormal behaviour [Unknown]
  - Lethargy [Unknown]
  - Aggression [Unknown]
  - Drug ineffective [Unknown]
